FAERS Safety Report 5390143-0 (Version None)
Quarter: 2007Q3

REPORT INFORMATION
  Report Type: 
  Country: None (occurrence: None)
  Receive Date: 20070716
  Receipt Date: 20070716
  Transmission Date: 20080115
  Serious: Yes (Hospitalization, Disabling)
  Sender: FDA-Public Use
  Company Number: None

PATIENT
  Sex: Male
  Weight: 46.3 kg

DRUGS (2)
  1. CELECOXIB [Suspect]
     Indication: DRUG THERAPY
     Dosage: 800 MG DAILY PO
     Route: 048
     Dates: start: 20070704, end: 20070704
  2. FLUCONAZOLE [Suspect]
     Indication: ANTIFUNGAL PROPHYLAXIS
     Dosage: 200 MG P.O. DAILY PO
     Route: 048
     Dates: start: 20070704, end: 20070710

REACTIONS (6)
  - DRUG TOXICITY [None]
  - GASTROINTESTINAL HAEMORRHAGE [None]
  - HELICOBACTER PYLORI IDENTIFICATION TEST POSITIVE [None]
  - ORAL INTAKE REDUCED [None]
  - PANCYTOPENIA [None]
  - PYREXIA [None]
